FAERS Safety Report 18617926 (Version 2)
Quarter: 2020Q4

REPORT INFORMATION
  Report Type: Spontaneous
  Country: DE (occurrence: DE)
  Receive Date: 20201215
  Receipt Date: 20201217
  Transmission Date: 20210114
  Serious: Yes (Death)
  Sender: FDA-Public Use
  Company Number: DE-BAYER-2020-274203

PATIENT
  Age: 12 Year

DRUGS (1)
  1. NEXAVAR [Suspect]
     Active Substance: SORAFENIB
     Indication: ACUTE MYELOID LEUKAEMIA
     Dosage: 200 MG, BID
     Dates: start: 20160408

REACTIONS (4)
  - Death [Fatal]
  - Product administered to patient of inappropriate age [None]
  - Off label use [None]
  - Product use in unapproved indication [None]
